FAERS Safety Report 19445316 (Version 12)
Quarter: 2022Q4

REPORT INFORMATION
  Report Type: Report from Study
  Country: JP (occurrence: JP)
  Receive Date: 20210622
  Receipt Date: 20221205
  Transmission Date: 20230113
  Serious: Yes (Hospitalization, Other)
  Sender: FDA-Public Use
  Company Number: JP-TAKEDA-2021TJP040722

PATIENT
  Age: 3 Year
  Sex: Male

DRUGS (15)
  1. ADVATE [Suspect]
     Active Substance: ANTIHEMOPHILIC FACTOR, HUMAN RECOMBINANT
     Indication: Factor VIII deficiency
     Dosage: 500 INTERNATIONAL UNIT
     Route: 042
     Dates: start: 201803
  2. ADVATE [Suspect]
     Active Substance: ANTIHEMOPHILIC FACTOR, HUMAN RECOMBINANT
     Indication: Factor VIII deficiency
     Dosage: 500 INTERNATIONAL UNIT
     Route: 042
     Dates: start: 201803
  3. ADVATE [Suspect]
     Active Substance: ANTIHEMOPHILIC FACTOR, HUMAN RECOMBINANT
     Indication: Factor VIII deficiency
     Dosage: 500 INTERNATIONAL UNIT
     Route: 042
     Dates: start: 201803
  4. ADVATE [Suspect]
     Active Substance: ANTIHEMOPHILIC FACTOR, HUMAN RECOMBINANT
     Indication: Haemorrhage prophylaxis
     Dosage: 1000 INTERNATIONAL UNIT
     Route: 042
     Dates: start: 201906
  5. ADVATE [Suspect]
     Active Substance: ANTIHEMOPHILIC FACTOR, HUMAN RECOMBINANT
     Indication: Haemorrhage prophylaxis
     Dosage: 1000 INTERNATIONAL UNIT
     Route: 042
     Dates: start: 201906
  6. ADVATE [Suspect]
     Active Substance: ANTIHEMOPHILIC FACTOR, HUMAN RECOMBINANT
     Indication: Haemorrhage prophylaxis
     Dosage: 1000 INTERNATIONAL UNIT
     Route: 042
     Dates: start: 201906
  7. ADVATE [Suspect]
     Active Substance: ANTIHEMOPHILIC FACTOR, HUMAN RECOMBINANT
     Dosage: 1000 INTERNATIONAL UNIT
     Route: 042
     Dates: start: 202008
  8. ADVATE [Suspect]
     Active Substance: ANTIHEMOPHILIC FACTOR, HUMAN RECOMBINANT
     Dosage: 1000 INTERNATIONAL UNIT
     Route: 042
     Dates: start: 202008
  9. ADVATE [Suspect]
     Active Substance: ANTIHEMOPHILIC FACTOR, HUMAN RECOMBINANT
     Dosage: 1000 INTERNATIONAL UNIT
     Route: 042
     Dates: start: 202008
  10. ADVATE [Suspect]
     Active Substance: ANTIHEMOPHILIC FACTOR, HUMAN RECOMBINANT
     Dosage: UNK INTERNATIONAL UNIT
     Route: 042
     Dates: start: 20220823
  11. ADVATE [Suspect]
     Active Substance: ANTIHEMOPHILIC FACTOR, HUMAN RECOMBINANT
     Dosage: UNK INTERNATIONAL UNIT
     Route: 042
     Dates: start: 20220823
  12. ADVATE [Suspect]
     Active Substance: ANTIHEMOPHILIC FACTOR, HUMAN RECOMBINANT
     Dosage: UNK INTERNATIONAL UNIT
     Route: 042
     Dates: start: 20220823
  13. ADVATE [Suspect]
     Active Substance: ANTIHEMOPHILIC FACTOR, HUMAN RECOMBINANT
     Dosage: UNK, 3/WEEK
     Route: 042
  14. ADVATE [Suspect]
     Active Substance: ANTIHEMOPHILIC FACTOR, HUMAN RECOMBINANT
     Dosage: UNK, 3/WEEK
     Route: 042
  15. ADVATE [Suspect]
     Active Substance: ANTIHEMOPHILIC FACTOR, HUMAN RECOMBINANT
     Dosage: UNK, 3/WEEK
     Route: 042

REACTIONS (27)
  - Haemorrhage [Recovered/Resolved]
  - Internal haemorrhage [Unknown]
  - Subcutaneous haematoma [Unknown]
  - Haemorrhage subcutaneous [Unknown]
  - Contusion [Recovered/Resolved]
  - Contusion [Recovered/Resolved]
  - Vomiting [Recovered/Resolved]
  - Fall [Recovered/Resolved]
  - Tooth extraction [Unknown]
  - Nasopharyngitis [Unknown]
  - Overweight [Unknown]
  - Fatigue [Unknown]
  - Injury [Unknown]
  - Fall [Unknown]
  - Contusion [Unknown]
  - Fall [Unknown]
  - Contusion [Unknown]
  - Fall [Unknown]
  - Ligament sprain [Unknown]
  - Contusion [Unknown]
  - Contusion [Recovered/Resolved]
  - Skin abrasion [Unknown]
  - Supernumerary teeth [Unknown]
  - Procedural pain [Unknown]
  - Gingival swelling [Unknown]
  - School refusal [Unknown]
  - Anxiety [Unknown]

NARRATIVE: CASE EVENT DATE: 20181001
